FAERS Safety Report 9106479 (Version 2)
Quarter: 2013Q4

REPORT INFORMATION
  Report Type: Spontaneous
  Country: US (occurrence: US)
  Receive Date: 20130221
  Receipt Date: 20131223
  Transmission Date: 20140711
  Serious: Yes (Death, Other)
  Sender: FDA-Public Use
  Company Number: US-B.I. PHARMACEUTICALS,INC./RIDGEFIELD-2013-BI-04309BP

PATIENT
  Age: 62 Year
  Sex: Male
  Weight: 89.36 kg

DRUGS (13)
  1. PRADAXA [Suspect]
     Indication: ANTICOAGULANT THERAPY
     Dates: start: 20110209, end: 20110309
  2. PRADAXA [Suspect]
     Indication: ATRIAL FIBRILLATION
  3. GABAPENTIN [Concomitant]
  4. METOLAZONE [Concomitant]
  5. TORSEMIDE [Concomitant]
  6. DIGOXIN [Concomitant]
  7. KLOR-CON [Concomitant]
  8. FLUTICASONE PREP SPRAY [Concomitant]
  9. LISINOPRIL [Concomitant]
  10. LIPITOR [Concomitant]
  11. AMIODARONE [Concomitant]
  12. ADULT LOW DOSE ASPIRIN [Concomitant]
  13. CLARITIN [Concomitant]

REACTIONS (6)
  - Haemorrhage [Fatal]
  - Intestinal ischaemia [Fatal]
  - Sepsis [Fatal]
  - Coagulopathy [Unknown]
  - Renal failure acute [Unknown]
  - Acute respiratory failure [Unknown]
